FAERS Safety Report 7147825-X (Version None)
Quarter: 2010Q4

REPORT INFORMATION
  Report Type: 
  Country: None (occurrence: None)
  Receive Date: 20101206
  Receipt Date: 20101206
  Transmission Date: 20110411
  Serious: No
  Sender: FDA-Public Use
  Company Number: None

PATIENT
  Sex: Female
  Weight: 68.0396 kg

DRUGS (1)
  1. HYDROCODONE BITARTRATE + ACETAMINOPHEN [Suspect]
     Dosage: 10 MG/325 4-6 HRS P.O.
     Route: 048
     Dates: start: 20101124, end: 20101202

REACTIONS (1)
  - INADEQUATE ANALGESIA [None]
